FAERS Safety Report 18556734 (Version 1)
Quarter: 2020Q4

REPORT INFORMATION
  Report Type: Spontaneous
  Country: JP (occurrence: JP)
  Receive Date: 20201128
  Receipt Date: 20201128
  Transmission Date: 20210114
  Serious: Yes (Other)
  Sender: FDA-Public Use
  Company Number: JP-JNJFOC-20201140378

PATIENT
  Age: 101 Year
  Sex: Female

DRUGS (1)
  1. XARELTO [Suspect]
     Active Substance: RIVAROXABAN
     Indication: PRODUCT USED FOR UNKNOWN INDICATION
     Route: 048

REACTIONS (5)
  - Gastric fistula [Unknown]
  - Blood loss anaemia [Not Recovered/Not Resolved]
  - Procedural haemorrhage [Unknown]
  - Haematemesis [Unknown]
  - Vessel puncture site swelling [Unknown]

NARRATIVE: CASE EVENT DATE: 2020
